FAERS Safety Report 7516277-X (Version None)
Quarter: 2011Q2

REPORT INFORMATION
  Report Type: 
  Country: None (occurrence: None)
  Receive Date: 20110601
  Receipt Date: 20110518
  Transmission Date: 20111010
  Serious: Yes (Hospitalization, Other)
  Sender: FDA-Public Use
  Company Number: PHEH2009US02408

PATIENT

DRUGS (27)
  1. BENEFIBER [Concomitant]
  2. DOCUSATE [Concomitant]
  3. PRILOSEC [Concomitant]
  4. FASLODEX [Concomitant]
  5. ALBUTEROL SULFATE AUTOHALER [Concomitant]
  6. NALOXONE HYDROCHLORIDE [Concomitant]
  7. PERCOCET [Concomitant]
  8. AREDIA [Suspect]
     Indication: METASTASES TO BONE
     Dosage: UNK
     Dates: end: 20060201
  9. POTASSIUM CHLORIDE [Concomitant]
  10. LASIX [Concomitant]
  11. CIPROFLOXACIN HYDROCHLORIDE [Concomitant]
  12. PANTOPRAZOLE [Concomitant]
  13. ACETAMINOPHEN [Concomitant]
  14. TEMAZEPAM [Concomitant]
  15. OMEPRAZOLE [Concomitant]
  16. MS CONTIN [Concomitant]
  17. OXYCODONE HCL [Concomitant]
  18. MIRALAX [Concomitant]
  19. DILTIAZEM [Concomitant]
  20. FUROSEMIDE [Concomitant]
  21. ZOLPIDEM [Concomitant]
     Dosage: UNK
  22. CELEBREX [Concomitant]
  23. LACTULOSE [Concomitant]
  24. LEXAPRO [Concomitant]
  25. LORAZEPAM [Concomitant]
  26. AVELOX [Concomitant]
  27. BISACODYL [Concomitant]

REACTIONS (53)
  - BONE DISORDER [None]
  - ATELECTASIS [None]
  - URINARY TRACT INFECTION [None]
  - VENOUS THROMBOSIS [None]
  - HYPERTENSION [None]
  - OSTEOPENIA [None]
  - DIASTOLIC DYSFUNCTION [None]
  - PAIN IN EXTREMITY [None]
  - VASCULITIS [None]
  - SKIN LESION [None]
  - EXOSTOSIS [None]
  - LEUKOCYTOSIS [None]
  - PNEUMONIA [None]
  - HYPOXIA [None]
  - MITRAL VALVE SCLEROSIS [None]
  - METASTASIS [None]
  - GANGRENE [None]
  - OSTEONECROSIS [None]
  - SPINAL COMPRESSION FRACTURE [None]
  - DIARRHOEA [None]
  - HAEMORRHOIDS [None]
  - DIAPHRAGMATIC DISORDER [None]
  - DYSPNOEA [None]
  - HYPERGLYCAEMIA [None]
  - ELECTROLYTE IMBALANCE [None]
  - ASTHENIA [None]
  - OSTEONECROSIS OF JAW [None]
  - ACTINOMYCOSIS [None]
  - SCOLIOSIS [None]
  - ACUTE RESPIRATORY FAILURE [None]
  - FAILURE TO THRIVE [None]
  - OSTEOARTHRITIS [None]
  - RECTAL ADENOMA [None]
  - POLYCYSTIC LIVER DISEASE [None]
  - NEPHROLITHIASIS [None]
  - HYPOKALAEMIA [None]
  - MALNUTRITION [None]
  - DYSARTHRIA [None]
  - ANAEMIA [None]
  - ACTINIC ELASTOSIS [None]
  - OEDEMA PERIPHERAL [None]
  - AORTIC VALVE SCLEROSIS [None]
  - LEFT VENTRICULAR HYPERTROPHY [None]
  - CLOSTRIDIUM DIFFICILE COLITIS [None]
  - DENTAL CARIES [None]
  - PERIPHERAL VASCULAR DISORDER [None]
  - RECTAL PROLAPSE [None]
  - ACTINIC KERATOSIS [None]
  - GASTROENTERITIS [None]
  - RENAL FAILURE [None]
  - CHEST PAIN [None]
  - DYSPHAGIA [None]
  - DEPRESSION [None]
